FAERS Safety Report 13332425 (Version 1)
Quarter: 2017Q1

REPORT INFORMATION
  Report Type: Spontaneous
  Country: US (occurrence: US)
  Receive Date: 20170314
  Receipt Date: 20170314
  Transmission Date: 20170428
  Serious: Yes (Other)
  Sender: FDA-Public Use
  Company Number: US-HORMOSAN-2017-00971

PATIENT
  Age: 30 Year
  Sex: Female
  Weight: 63.49 kg

DRUGS (5)
  1. LEVETIRACETAM EXTENDED RELEASE TABLET USP, 750 MG [Suspect]
     Active Substance: LEVETIRACETAM
     Indication: EPILEPSY
     Dosage: 3000 MG, QD
     Route: 048
     Dates: start: 201609
  2. PRENATAL                           /00231801/ [Concomitant]
     Active Substance: VITAMINS
     Indication: PRODUCT USED FOR UNKNOWN INDICATION
     Dosage: UNKNOWN
     Route: 065
  3. VITAMIN D                          /00107901/ [Concomitant]
     Active Substance: ERGOCALCIFEROL
     Indication: PRODUCT USED FOR UNKNOWN INDICATION
     Dosage: UNKNOWN
     Route: 065
  4. IRON [Concomitant]
     Active Substance: IRON
     Indication: PRODUCT USED FOR UNKNOWN INDICATION
     Dosage: UNKNOWN
     Route: 065
  5. FOLIC ACID. [Concomitant]
     Active Substance: FOLIC ACID
     Indication: PRODUCT USED FOR UNKNOWN INDICATION
     Dosage: UNKNOWN
     Route: 065

REACTIONS (3)
  - Exposure during pregnancy [Unknown]
  - Pregnancy [None]
  - Abortion spontaneous [Unknown]

NARRATIVE: CASE EVENT DATE: 201702
